FAERS Safety Report 13506932 (Version 2)
Quarter: 2017Q2

REPORT INFORMATION
  Report Type: Report from Study
  Country: KR (occurrence: KR)
  Receive Date: 20170503
  Receipt Date: 20170524
  Transmission Date: 20170830
  Serious: Yes (Hospitalization)
  Sender: FDA-Public Use
  Company Number: KR-ROCHE-1929800

PATIENT
  Age: 64 Year
  Sex: Male
  Weight: 50 kg

DRUGS (20)
  1. PENIRAMIN [Concomitant]
     Dosage: 1AMP
     Route: 065
     Dates: start: 20170104, end: 20170104
  2. MUCOSTA [Concomitant]
     Active Substance: REBAMIPIDE
     Indication: PNEUMONIA
     Dosage: 1TAB
     Route: 065
     Dates: start: 20170304
  3. ABATACEPT [Concomitant]
     Active Substance: ABATACEPT
  4. FOLIC ACID. [Concomitant]
     Active Substance: FOLIC ACID
     Dosage: 1TAB
     Route: 065
     Dates: start: 20151010
  5. TOCILIZUMAB [Suspect]
     Active Substance: TOCILIZUMAB
     Indication: RHEUMATOID ARTHRITIS
     Route: 042
     Dates: start: 20170104
  6. MOKTIN [Concomitant]
     Indication: PNEUMONIA
     Dosage: 3TAB
     Route: 065
     Dates: start: 20170204, end: 20170331
  7. SOLONDO [Concomitant]
     Active Substance: PREDNISOLONE
     Indication: SWELLING
     Dosage: 1TAB
     Route: 065
     Dates: start: 20151010
  8. SOLONDO [Concomitant]
     Active Substance: PREDNISOLONE
     Dosage: 1TAB
     Route: 065
     Dates: start: 20151010
  9. FOSAMAX PLUS D [Concomitant]
     Active Substance: ALENDRONATE SODIUM\CHOLECALCIFEROL
     Indication: OSTEOPOROSIS
     Dosage: 1TAB
     Route: 065
     Dates: start: 20151010
  10. PARIET [Concomitant]
     Active Substance: RABEPRAZOLE SODIUM
     Indication: GASTRIC ULCER
     Dosage: 1TAB
     Route: 065
     Dates: start: 20151010
  11. PENIRAMIN [Concomitant]
     Dosage: 1AMP
     Route: 065
     Dates: start: 20170304, end: 20170304
  12. DEXAMETASON [Concomitant]
     Active Substance: DEXAMETHASONE
     Dosage: 1AMP
     Route: 065
     Dates: start: 20170204, end: 20170204
  13. DEXAMETASON [Concomitant]
     Active Substance: DEXAMETHASONE
     Dosage: 1AMP
     Route: 065
     Dates: start: 20170304, end: 20170304
  14. MEIACT [Concomitant]
     Active Substance: CEFDITOREN PIVOXIL
     Indication: PNEUMONIA
     Dosage: 3TAB
     Route: 065
     Dates: start: 20170204, end: 20170331
  15. JOINS [Concomitant]
     Indication: PAIN
     Dosage: 2TAB
     Route: 065
     Dates: start: 20151010, end: 20170303
  16. PENIRAMIN [Concomitant]
     Dosage: 1AMP
     Route: 065
     Dates: start: 20170204, end: 20170204
  17. DEXAMETASON [Concomitant]
     Active Substance: DEXAMETHASONE
     Dosage: 1AMP
     Route: 065
     Dates: start: 20170104, end: 20170104
  18. HYDROXYCHLOROQUINE [Concomitant]
     Active Substance: HYDROXYCHLOROQUINE
  19. METHOTREXATE. [Concomitant]
     Active Substance: METHOTREXATE
     Dosage: 6TAB
     Route: 065
     Dates: start: 20151010
  20. TRAMADOL. [Concomitant]
     Active Substance: TRAMADOL
     Dosage: 2TAB
     Route: 065
     Dates: start: 20160730

REACTIONS (1)
  - Pancytopenia [Recovered/Resolved]

NARRATIVE: CASE EVENT DATE: 20170415
